FAERS Safety Report 6266046-6 (Version None)
Quarter: 2009Q3

REPORT INFORMATION
  Report Type: 
  Country: None (occurrence: None)
  Receive Date: 20090713
  Receipt Date: 20090702
  Transmission Date: 20100115
  Serious: Yes (Hospitalization, Other)
  Sender: FDA-Public Use
  Company Number: US-WYE-H08963209

PATIENT
  Age: 55 Year
  Sex: Male
  Weight: 94.55 kg

DRUGS (7)
  1. TORISEL [Suspect]
     Indication: RENAL CELL CARCINOMA
     Dosage: 37.5 MG OVER 30 MINUTES ON DAYS 8, 15, AND 22; TOTAL DOSE ADMINISTERED THIS COURSE WAS 112.5MG
     Route: 042
     Dates: start: 20090301, end: 20090324
  2. ALTACE [Suspect]
     Dosage: UNKNOWN
  3. SENOKOT [Concomitant]
     Dosage: UNKNOWN
  4. LOVASTATIN [Concomitant]
     Dosage: UNKNOWN
  5. METOPROLOL TARTRATE [Concomitant]
     Dosage: UNKNOWN
  6. IBUPROFEN [Suspect]
     Dosage: UNKNOWN
     Dates: end: 20090317
  7. ZOMETA [Suspect]
     Dosage: UNKNOWN

REACTIONS (3)
  - BLOOD CREATININE INCREASED [None]
  - HAEMOGLOBIN DECREASED [None]
  - RENAL FAILURE [None]
